FAERS Safety Report 6108041-3 (Version None)
Quarter: 2009Q1

REPORT INFORMATION
  Report Type: 
  Country: None (occurrence: None)
  Receive Date: 20090304
  Receipt Date: 20071212
  Transmission Date: 20090719
  Serious: Yes (Other)
  Sender: FDA-Public Use
  Company Number: BDI-010605

PATIENT
  Age: 57 Year
  Sex: Male

DRUGS (9)
  1. ISOVUE-300 [Suspect]
     Indication: ANGIOPLASTY
     Dosage: 27ML QD INTRAVENOUS
     Route: 042
     Dates: start: 20071105, end: 20071105
  2. ISOVUE-300 [Suspect]
     Indication: THROMBECTOMY
     Dosage: 27ML QD INTRAVENOUS
     Route: 042
     Dates: start: 20071105, end: 20071105
  3. BENADRYL [Concomitant]
  4. SOLU-MEDROL [Concomitant]
  5. CARVEDILOL [Concomitant]
  6. HEPARIN [Concomitant]
  7. VERSED [Concomitant]
  8. FLUMAZENIL [Concomitant]
  9. INSULIN (INSULIN) [Concomitant]

REACTIONS (1)
  - HYPERSENSITIVITY [None]
